FAERS Safety Report 6501914-9 (Version None)
Quarter: 2009Q4

REPORT INFORMATION
  Report Type: 
  Country: None (occurrence: None)
  Receive Date: 20091216
  Receipt Date: 20091215
  Transmission Date: 20100525
  Serious: Yes (Death, Other)
  Sender: FDA-Public Use
  Company Number: PHEH2008US05592

PATIENT
  Age: 49 Year
  Sex: Female
  Weight: 58.503 kg

DRUGS (11)
  1. ZOMETA [Suspect]
     Dosage: EVERY 4 WEEKS
  2. FASLODEX [Concomitant]
     Dosage: UNK
     Dates: start: 20051101, end: 20060801
  3. ABRAXANE [Concomitant]
     Dosage: UNK
     Dates: end: 20070501
  4. AVASTIN [Concomitant]
     Dosage: UNK
     Dates: end: 20070501
  5. KYTRIL [Concomitant]
  6. BENADRYL ^PFIZER WARNER-LAMBERT^ [Concomitant]
  7. RANITIDINE [Concomitant]
     Dosage: 25 MG, UNK
  8. DOXORUBICIN HCL [Concomitant]
  9. IXABEPILONE [Concomitant]
     Dosage: UNK
     Dates: start: 20080523
  10. TAMOXIFEN CITRATE [Concomitant]
  11. DOXIL [Concomitant]

REACTIONS (20)
  - ANHEDONIA [None]
  - ANXIETY [None]
  - ASTHENIA [None]
  - ATELECTASIS [None]
  - CARDIOMEGALY [None]
  - CARDIOPULMONARY FAILURE [None]
  - COLITIS [None]
  - DENTAL CARIES [None]
  - DYSPNOEA [None]
  - INJURY [None]
  - LOSS OF CONSCIOUSNESS [None]
  - METASTASES TO CENTRAL NERVOUS SYSTEM [None]
  - METASTASES TO LIVER [None]
  - METASTASES TO SPINE [None]
  - OSTEONECROSIS [None]
  - OSTEOPENIA [None]
  - PAIN [None]
  - PAIN IN JAW [None]
  - PERICARDIAL DRAINAGE [None]
  - UNRESPONSIVE TO STIMULI [None]
